FAERS Safety Report 7592983-6 (Version None)
Quarter: 2011Q3

REPORT INFORMATION
  Report Type: 
  Country: None (occurrence: None)
  Receive Date: 20110706
  Receipt Date: 20110614
  Transmission Date: 20111222
  Serious: Yes (Hospitalization, Congenital Anomaly)
  Sender: FDA-Public Use
  Company Number: US-GLAXOSMITHKLINE-A0934855A

PATIENT
  Sex: Male

DRUGS (3)
  1. PAXIL [Suspect]
     Indication: ANXIETY
     Dosage: 20MG PER DAY
     Route: 064
  2. PRENATAL VITAMINS [Concomitant]
     Route: 064
  3. MACROBID [Concomitant]
     Route: 064

REACTIONS (5)
  - SPINA BIFIDA [None]
  - SCOLIOSIS [None]
  - MATERNAL EXPOSURE DURING PREGNANCY [None]
  - MENINGOMYELOCELE [None]
  - NEUROGENIC BLADDER [None]
